FAERS Safety Report 11634232 (Version 3)
Quarter: 2016Q1

REPORT INFORMATION
  Report Type: Spontaneous
  Country: FR (occurrence: FR)
  Receive Date: 20151015
  Receipt Date: 20160101
  Transmission Date: 20160525
  Serious: Yes (Death, Other)
  Sender: FDA-Public Use
  Company Number: FR-ASTRAZENECA-2015SE99297

PATIENT
  Age: 30737 Day
  Sex: Female
  Weight: 59.8 kg

DRUGS (6)
  1. CORDARONE [Interacting]
     Active Substance: AMIODARONE HYDROCHLORIDE
     Indication: ATRIAL FIBRILLATION
     Route: 065
     Dates: start: 20151007, end: 20151008
  2. ALPRAZOLAM. [Concomitant]
     Active Substance: ALPRAZOLAM
     Dosage: THREE TIMES A DAY
  3. SOLIAN [Interacting]
     Active Substance: AMISULPRIDE
     Dosage: 100 MG/ML AT A DOSE OF 100 MG MORNING, 150 MG AT MIDDAY, 100 MG EVENING AND 100 MG AT NIGHT
     Route: 065
     Dates: start: 20090608, end: 20151009
  4. XEROQUEL [Suspect]
     Active Substance: QUETIAPINE FUMARATE
     Route: 048
     Dates: start: 20130203, end: 20151009
  5. UNSPECIFIED PROTON PUMP INHIBITOR [Concomitant]
     Active Substance: UNSPECIFIED INGREDIENT
  6. LOVENOX [Concomitant]
     Active Substance: ENOXAPARIN SODIUM

REACTIONS (5)
  - Drug interaction [Fatal]
  - Cerebrovascular accident [Fatal]
  - Tachyarrhythmia [Recovered/Resolved]
  - Confusional state [Unknown]
  - Off label use [Recovered/Resolved]

NARRATIVE: CASE EVENT DATE: 20151007
